FAERS Safety Report 6126527-2 (Version None)
Quarter: 2009Q1

REPORT INFORMATION
  Report Type: 
  Country: None (occurrence: None)
  Receive Date: 20090320
  Receipt Date: 20090312
  Transmission Date: 20090719
  Serious: Yes (Other)
  Sender: FDA-Public Use
  Company Number: US-JNJCH-2009002715

PATIENT
  Age: 69 Year
  Sex: Female
  Weight: 63.5 kg

DRUGS (2)
  1. ACTIFED COLD + ALLERGY PE [Suspect]
     Indication: NASOPHARYNGITIS
     Dosage: TEXT:1 TABLET 3X TIMES MON TUES 1X WED
     Route: 048
  2. DELSYM [Suspect]
     Indication: COUGH
     Dosage: TEXT:2 TEASPOON
     Route: 048

REACTIONS (5)
  - AGITATION [None]
  - CONFUSIONAL STATE [None]
  - DRY MOUTH [None]
  - FEELING HOT [None]
  - MUSCLE SPASMS [None]
